FAERS Safety Report 18576081 (Version 2)
Quarter: 2021Q1

REPORT INFORMATION
  Report Type: Spontaneous
  Country: US (occurrence: US)
  Receive Date: 20201203
  Receipt Date: 20210212
  Transmission Date: 20210419
  Serious: No
  Sender: FDA-Public Use
  Company Number: US-009507513-2011USA013691

PATIENT
  Age: 23 Year
  Sex: Female

DRUGS (1)
  1. NEXPLANON [Suspect]
     Active Substance: ETONOGESTREL
     Indication: CONTRACEPTION
     Dosage: 1 IMPLANT (68 MG ONCE)
     Route: 059
     Dates: start: 201609

REACTIONS (3)
  - Incorrect product administration duration [Unknown]
  - Circumstance or information capable of leading to medication error [Unknown]
  - Surgery [Unknown]

NARRATIVE: CASE EVENT DATE: 201909
